FAERS Safety Report 14984341 (Version 8)
Quarter: 2021Q1

REPORT INFORMATION
  Report Type: Report from Study
  Country: FR (occurrence: FR)
  Receive Date: 20180607
  Receipt Date: 20210127
  Transmission Date: 20210419
  Serious: Yes (Life-Threatening, Hospitalization, Other)
  Sender: FDA-Public Use
  Company Number: FR-JAZZ-2017-FR-009982

PATIENT

DRUGS (30)
  1. MYCOPHENOLATE MOFETIL. [Suspect]
     Active Substance: MYCOPHENOLATE MOFETIL
     Indication: IMMUNOSUPPRESSION
     Dosage: 200MG, TID
     Route: 042
     Dates: end: 20170821
  2. ESOMEPRAZOLE. [Concomitant]
     Active Substance: ESOMEPRAZOLE MAGNESIUM
     Indication: PRODUCT USED FOR UNKNOWN INDICATION
     Dosage: 7.5 MG, QD
     Route: 042
     Dates: end: 2017
  3. METRONIDAZOLE. [Concomitant]
     Active Substance: METRONIDAZOLE
     Indication: PRODUCT USED FOR UNKNOWN INDICATION
     Dosage: 100 MG, QID
     Route: 048
     Dates: start: 20170821
  4. FLUCONAZOLE. [Concomitant]
     Active Substance: FLUCONAZOLE
     Indication: PRODUCT USED FOR UNKNOWN INDICATION
     Dosage: 75 MG, QD
     Route: 048
  5. MAGNESIUM CARBONATE [Concomitant]
     Active Substance: MAGNESIUM CARBONATE
     Indication: PRODUCT USED FOR UNKNOWN INDICATION
     Dosage: 1 AMPOULE , TID
     Route: 048
  6. DEXCHLORPHENIRAMINE [Concomitant]
     Active Substance: DEXCHLORPHENIRAMINE
     Indication: PRODUCT USED FOR UNKNOWN INDICATION
     Dosage: ? AMPOULE , TID
     Route: 042
  7. METOPIMAZINE [Concomitant]
     Active Substance: METOPIMAZINE
     Indication: PRODUCT USED FOR UNKNOWN INDICATION
     Dosage: 10 MG, QD
     Route: 042
  8. ACICLOVIR [Concomitant]
     Active Substance: ACYCLOVIR
     Indication: PRODUCT USED FOR UNKNOWN INDICATION
     Dosage: 300 MG, QID
     Route: 048
  9. ZYMA?D2 [Concomitant]
     Active Substance: ERGOCALCIFEROL
     Indication: PRODUCT USED FOR UNKNOWN INDICATION
     Dosage: 4 DROPS DAILY BY MOUTH
     Route: 048
  10. PARACETAMOL [Concomitant]
     Active Substance: ACETAMINOPHEN
     Indication: PRODUCT USED FOR UNKNOWN INDICATION
     Dosage: 200 MG, QID
     Route: 048
     Dates: end: 2017
  11. URSOFALK [Concomitant]
     Active Substance: URSODIOL
     Indication: PRODUCT USED FOR UNKNOWN INDICATION
     Dosage: 100 MG, BID
     Dates: end: 2017
  12. CLONAZEPAM. [Concomitant]
     Active Substance: CLONAZEPAM
     Indication: PRODUCT USED FOR UNKNOWN INDICATION
     Dosage: 1 DROP, QD IN EVENING
     Route: 048
     Dates: end: 2017
  13. BACTRIM [Concomitant]
     Active Substance: SULFAMETHOXAZOLE\TRIMETHOPRIM
     Indication: PRODUCT USED FOR UNKNOWN INDICATION
     Dosage: 300 MG, 3 TIMES PER WEEK
     Dates: end: 2017
  14. HYDROXYZINE [Concomitant]
     Active Substance: HYDROXYZINE HYDROCHLORIDE
     Indication: PRODUCT USED FOR UNKNOWN INDICATION
     Dosage: 15 MG, QD
     Route: 048
     Dates: end: 2017
  15. SOLU?MEDROL [Concomitant]
     Active Substance: METHYLPREDNISOLONE SODIUM SUCCINATE
     Dosage: 8 MG, BID
     Dates: start: 20170903
  16. DEFITELIO [Suspect]
     Active Substance: DEFIBROTIDE SODIUM
     Indication: PROPHYLAXIS
     Dosage: 80 MG, QID
     Route: 042
     Dates: start: 20170717, end: 20170717
  17. DEFITELIO [Suspect]
     Active Substance: DEFIBROTIDE SODIUM
     Indication: VENOOCCLUSIVE DISEASE
     Dosage: 24 MG, QID
     Route: 042
     Dates: start: 20170717, end: 20170813
  18. CICLOSPORIN [Concomitant]
     Active Substance: CYCLOSPORINE
     Indication: PRODUCT USED FOR UNKNOWN INDICATION
     Dosage: 30 MG, BID
     Dates: end: 2017
  19. GRANULOCYTE COLONY STIMULATING FACTOR [Concomitant]
     Active Substance: GRANULOCYTE COLONY-STIMULATING FACTOR NOS
     Indication: PRODUCT USED FOR UNKNOWN INDICATION
     Dosage: 75 ?G, QD
     Route: 058
     Dates: end: 2017
  20. IMMUNOGLOBULINS NOS [Concomitant]
     Active Substance: IMMUNE GLOBULIN NOS
     Indication: PRODUCT USED FOR UNKNOWN INDICATION
     Dosage: 2.5G, QW ON WEDNESDAY
     Dates: end: 2017
  21. ZYMAD [Concomitant]
     Active Substance: CHOLECALCIFEROL
     Indication: PRODUCT USED FOR UNKNOWN INDICATION
     Dosage: 4 DROPS, QD
     Route: 048
     Dates: end: 2017
  22. RAMIPRIL. [Concomitant]
     Active Substance: RAMIPRIL
     Indication: PRODUCT USED FOR UNKNOWN INDICATION
     Dosage: 1.25 MG, ? TABLET DAILY IN THE EVENING
  23. NICARDIPINE [Concomitant]
     Active Substance: NICARDIPINE
     Indication: PRODUCT USED FOR UNKNOWN INDICATION
     Dosage: 15 MG, TID
     Route: 048
     Dates: end: 2017
  24. SOLU?MEDROL [Concomitant]
     Active Substance: METHYLPREDNISOLONE SODIUM SUCCINATE
     Indication: PRODUCT USED FOR UNKNOWN INDICATION
     Dosage: 10 MG, BID
     Dates: end: 20170902
  25. PHENOXYMETHYLPENICILLIN POTASSIUM [Concomitant]
     Active Substance: PENICILLIN V POTASSIUM
     Indication: PRODUCT USED FOR UNKNOWN INDICATION
     Dosage: 350000 IU, BID
  26. RAMIPRIL. [Concomitant]
     Active Substance: RAMIPRIL
     Dosage: 1 MG, QD
  27. CALCIUM GLUCONATE. [Concomitant]
     Active Substance: CALCIUM GLUCONATE
     Indication: PRODUCT USED FOR UNKNOWN INDICATION
     Dosage: 1300 ML, QD
  28. ONDANSETRON [Concomitant]
     Active Substance: ONDANSETRON
     Indication: PRODUCT USED FOR UNKNOWN INDICATION
     Dosage: 4 MG, BID
     Route: 042
     Dates: end: 2017
  29. NALBUPHINE [Concomitant]
     Active Substance: NALBUPHINE
     Indication: PRODUCT USED FOR UNKNOWN INDICATION
     Dosage: 18 MG, QD
     Route: 042
     Dates: end: 2017
  30. SODIUM BICARBONATE. [Concomitant]
     Active Substance: SODIUM BICARBONATE
     Indication: PRODUCT USED FOR UNKNOWN INDICATION
     Dosage: 1.4%, QD

REACTIONS (12)
  - Sepsis [Not Recovered/Not Resolved]
  - Febrile bone marrow aplasia [Unknown]
  - Neuralgia [Unknown]
  - Diarrhoea [Not Recovered/Not Resolved]
  - Mucosal inflammation [Recovered/Resolved]
  - Venoocclusive disease [Recovered/Resolved]
  - Clostridium difficile infection [Recovered/Resolved]
  - Graft versus host disease in gastrointestinal tract [Unknown]
  - Vomiting [Not Recovered/Not Resolved]
  - Graft versus host disease in skin [Unknown]
  - Off label use [Unknown]
  - Hypertension [Unknown]

NARRATIVE: CASE EVENT DATE: 20170717
